FAERS Safety Report 23628705 (Version 5)
Quarter: 2024Q3

REPORT INFORMATION
  Report Type: Report from Study
  Country: US (occurrence: US)
  Receive Date: 20240313
  Receipt Date: 20240718
  Transmission Date: 20241017
  Serious: Yes (Hospitalization, Other)
  Sender: EISAI
  Company Number: US-Eisai-EC-2024-161352

PATIENT
  Sex: Male
  Weight: 166 kg

DRUGS (2)
  1. LENVATINIB [Suspect]
     Active Substance: LENVATINIB
     Indication: Neuroendocrine cancer of the prostate metastatic
     Dosage: STARTING DOSE AT 20 MG (FLUCTUATED DOSE)
     Route: 048
     Dates: start: 20231130, end: 20240624
  2. PEMBROLIZUMAB [Suspect]
     Active Substance: PEMBROLIZUMAB
     Indication: Neuroendocrine cancer of the prostate metastatic
     Route: 042
     Dates: start: 20231130, end: 20240605

REACTIONS (2)
  - Fatigue [Recovered/Resolved]
  - Back pain [Recovered/Resolved]

NARRATIVE: CASE EVENT DATE: 20240301
